FAERS Safety Report 9957698 (Version 1)
Quarter: 2014Q1

REPORT INFORMATION
  Report Type: Report from Study
  Country: US (occurrence: US)
  Receive Date: 20140304
  Receipt Date: 20140304
  Transmission Date: 20141002
  Serious: No
  Sender: FDA-Public Use
  Company Number: US-ABBVIE-13P-163-1094148-00

PATIENT
  Sex: Female

DRUGS (8)
  1. HUMIRA [Suspect]
     Indication: PSORIATIC ARTHROPATHY
  2. NABUMETONE [Concomitant]
     Indication: INFLAMMATION
  3. NOREPHENEGRAN [Concomitant]
     Indication: MENSTRUAL CYCLE MANAGEMENT
  4. CETIRIZINE [Concomitant]
     Indication: HYPERSENSITIVITY
  5. CYMBALTA [Concomitant]
     Indication: NEURALGIA
  6. CYMBALTA [Concomitant]
     Indication: DEPRESSION
  7. MULTIVITAMINS [Concomitant]
     Indication: PRODUCT USED FOR UNKNOWN INDICATION
  8. CALCIUM [Concomitant]
     Indication: VITAMIN SUPPLEMENTATION

REACTIONS (3)
  - Vision blurred [Not Recovered/Not Resolved]
  - Arthralgia [Not Recovered/Not Resolved]
  - Pain [Not Recovered/Not Resolved]
